FAERS Safety Report 4731627-5 (Version None)
Quarter: 2005Q3

REPORT INFORMATION
  Report Type: 
  Country: None (occurrence: None)
  Receive Date: 20050725
  Receipt Date: 20050104
  Transmission Date: 20060218
  Serious: Yes (Disabling)
  Sender: FDA-Public Use
  Company Number: WAES 0501USA00265

PATIENT
  Sex: Female

DRUGS (1)
  1. VIOXX [Suspect]
     Indication: ARTHRITIS
     Dosage: 12.5 MG/DAILY/PO
     Route: 048
     Dates: start: 20040301, end: 20040501

REACTIONS (4)
  - ANOREXIA [None]
  - ASTHENIA [None]
  - LETHARGY [None]
  - POLLAKIURIA [None]
